FAERS Safety Report 22587443 (Version 1)
Quarter: 2023Q2

REPORT INFORMATION
  Report Type: Other
  Country: SE (occurrence: SE)
  Receive Date: 20230612
  Receipt Date: 20230612
  Transmission Date: 20230722
  Serious: Yes (Disabling)
  Sender: FDA-Public Use
  Company Number: SE-DENTSPLY-2023SCDP000176

PATIENT
  Age: 82 Year
  Sex: Female

DRUGS (1)
  1. EPINEPHRINE BITARTRATE\LIDOCAINE HYDROCHLORIDE [Suspect]
     Active Substance: EPINEPHRINE BITARTRATE\LIDOCAINE HYDROCHLORIDE
     Indication: Tooth extraction
     Dosage: 5X1.8 ML OF 20 MG/ML + 12.5 MCGS/ML XYLOCAIN DENTAL ADRENALIN INJECTION FLUID, SOLUTION/SOLUTION FOR

REACTIONS (2)
  - Injection site nerve damage [None]
  - Hypoaesthesia oral [None]
